FAERS Safety Report 4946869-3 (Version None)
Quarter: 2006Q1

REPORT INFORMATION
  Report Type: 
  Country: None (occurrence: None)
  Receive Date: 20060317
  Receipt Date: 20050119
  Transmission Date: 20060701
  Serious: Yes (Life-Threatening, Hospitalization)
  Sender: FDA-Public Use
  Company Number: DE-MERCK-0501DEU00195

PATIENT
  Age: 54 Year
  Sex: Female
  Weight: 86 kg

DRUGS (13)
  1. VIOXX [Suspect]
     Indication: MUSCULOSKELETAL PAIN
     Route: 048
     Dates: start: 20020823, end: 20030704
  2. VIOXX [Suspect]
     Route: 048
     Dates: start: 20040301, end: 20040608
  3. VIOXX [Suspect]
     Route: 048
     Dates: start: 20030704, end: 20031111
  4. VIOXX [Suspect]
     Route: 048
     Dates: start: 20040714, end: 20040101
  5. VIOXX [Suspect]
     Indication: RHEUMATOID ARTHRITIS
     Route: 048
     Dates: start: 20020823, end: 20030704
  6. VIOXX [Suspect]
     Route: 048
     Dates: start: 20040301, end: 20040608
  7. VIOXX [Suspect]
     Route: 048
     Dates: start: 20030704, end: 20031111
  8. VIOXX [Suspect]
     Route: 048
     Dates: start: 20040714, end: 20040101
  9. PREDNISONE [Suspect]
     Indication: RHEUMATOID ARTHRITIS
     Route: 065
     Dates: start: 20020823
  10. PREDNISONE [Suspect]
     Route: 065
     Dates: start: 20020901
  11. LEFLUNOMIDE [Concomitant]
     Route: 065
     Dates: start: 20030217
  12. METHOTREXATE SODIUM [Suspect]
     Indication: RHEUMATOID ARTHRITIS
     Route: 065
     Dates: start: 20020801
  13. METHOTREXATE SODIUM [Suspect]
     Route: 065
     Dates: start: 20020901

REACTIONS (6)
  - ABDOMINAL PAIN UPPER [None]
  - ACUTE MYOCARDIAL INFARCTION [None]
  - ALOPECIA [None]
  - ASTHENIA [None]
  - CORONARY ARTERY DISEASE [None]
  - RHEUMATOID ARTHRITIS [None]
